FAERS Safety Report 18213892 (Version 1)
Quarter: 2020Q3

REPORT INFORMATION
  Report Type: Report from Study
  Country: US (occurrence: US)
  Receive Date: 20200831
  Receipt Date: 20200831
  Transmission Date: 20201103
  Serious: Yes (Other)
  Sender: FDA-Public Use
  Company Number: US-MYLANLABS-2020M1074841

PATIENT
  Sex: Female

DRUGS (4)
  1. CALCIUM FOLINATE [Suspect]
     Active Substance: LEUCOVORIN CALCIUM
     Indication: BREAST CANCER STAGE II
     Dosage: 500 MILLIGRAM/SQ. METERADMINISTERED ON DAYS 1, 2 AND 3..
     Route: 040
  2. CYCLOPHOSPHAMIDE. [Suspect]
     Active Substance: CYCLOPHOSPHAMIDE
     Indication: BREAST CANCER STAGE II
     Dosage: 600 MILLIGRAM/SQ. METERADMINISTERED ON DAY 1 EVERY 21 DAYS....
     Route: 040
  3. DOXORUBICIN [Suspect]
     Active Substance: DOXORUBICIN
     Indication: BREAST CANCER STAGE II
     Dosage: 15 MILLIGRAM/SQ. METERADMINISTERED ON DAYS 1, 2 AND 3..
     Route: 040
  4. FLUOROURACIL. [Suspect]
     Active Substance: FLUOROURACIL
     Indication: BREAST CANCER STAGE II
     Dosage: 400 MILLIGRAM/SQ. METERADMINISTERED ON DAYS 1, 2 AND 3...
     Route: 040

REACTIONS (1)
  - Cardiac failure congestive [Unknown]
